FAERS Safety Report 9049280 (Version 1)
Quarter: 2013Q1

REPORT INFORMATION
  Report Type: Report from Study
  Country: PH (occurrence: PH)
  Receive Date: 20130205
  Receipt Date: 20130205
  Transmission Date: 20140127
  Serious: Yes (Other)
  Sender: FDA-Public Use
  Company Number: PH-UCBSA-076642

PATIENT
  Sex: Female

DRUGS (7)
  1. LEVETIRACETAM [Suspect]
     Indication: EPILEPSY
     Dosage: ROUTE-TRANSEMINAL, DAILY DOSE-1000 MG/DAY
     Route: 050
     Dates: start: 20080914, end: 20080922
  2. LEVETIRACETAM [Suspect]
     Indication: EPILEPSY
     Dosage: ROUTE-TRANSEMINAL, DOSE-500 MG/DAY
     Route: 050
     Dates: start: 20080923, end: 20080923
  3. LEVETIRACETAM [Suspect]
     Indication: EPILEPSY
     Dosage: DROUTE-TRANSEMINAL, AILY DOSE-1000 MG/DAY
     Route: 050
     Dates: start: 20080924, end: 20080926
  4. LEVETIRACETAM [Suspect]
     Indication: EPILEPSY
     Dosage: ROUTE-TRANSEMINAL, DAILY DOSE-500MG/DAY
     Route: 050
     Dates: start: 20080927, end: 20080927
  5. LEVETIRACETAM [Suspect]
     Indication: EPILEPSY
     Dosage: ROUTE-TRANSEMINAL, DAILY DOSE-1000 MG
     Route: 050
     Dates: start: 20080928, end: 20111017
  6. CARBAMAZEPINE [Concomitant]
     Indication: EPILEPSY
     Dosage: ROUTE-TRANS SEMINAL
     Route: 050
     Dates: start: 2008, end: 2008
  7. LAMOTRIGINE [Concomitant]
     Indication: EPILEPSY
     Dosage: ROUTE-TRANS SEMINAL
     Route: 050
     Dates: start: 2008, end: 2008

REACTIONS (2)
  - Premature delivery [Unknown]
  - Exposure via body fluid [Recovered/Resolved]
